FAERS Safety Report 23111092 (Version 1)
Quarter: 2023Q4

REPORT INFORMATION
  Report Type: Spontaneous
  Country: GB (occurrence: GB)
  Receive Date: 20231026
  Receipt Date: 20231026
  Transmission Date: 20240110
  Serious: Yes (Hospitalization, Other)
  Sender: FDA-Public Use
  Company Number: GB-JAZZ-2020-GB-014595

PATIENT
  Age: 41 Year
  Sex: Female

DRUGS (1)
  1. DEFITELIO [Suspect]
     Active Substance: DEFIBROTIDE SODIUM
     Indication: Venoocclusive disease
     Dosage: UNKNOWN DOSE
     Route: 042
     Dates: start: 20200515

REACTIONS (2)
  - COVID-19 [Unknown]
  - Pneumonitis [Unknown]

NARRATIVE: CASE EVENT DATE: 20200525
